FAERS Safety Report 4753914-7 (Version None)
Quarter: 2005Q3

REPORT INFORMATION
  Report Type: 
  Country: None (occurrence: None)
  Receive Date: 20050823
  Receipt Date: 20050615
  Transmission Date: 20060218
  Serious: No
  Sender: FDA-Public Use
  Company Number: 215345

PATIENT
  Age: 43 Year
  Sex: Female

DRUGS (1)
  1. RAPTIVA [Suspect]
     Indication: PSORIASIS
     Dosage: 120 MG, 1/WEEK
     Dates: start: 20050514

REACTIONS (1)
  - LYMPHOCYTE COUNT INCREASED [None]
